FAERS Safety Report 7761215-8 (Version None)
Quarter: 2011Q3

REPORT INFORMATION
  Report Type: 
  Country: None (occurrence: None)
  Receive Date: 20110920
  Receipt Date: 20110909
  Transmission Date: 20111222
  Serious: Yes (Other)
  Sender: FDA-Public Use
  Company Number: PHHY2011JP80945

PATIENT
  Age: 55 Year
  Sex: Female

DRUGS (2)
  1. TOREMIFENE [Suspect]
     Indication: BREAST CANCER METASTATIC
     Dosage: 120 MG/BODY
     Route: 048
  2. DOCETAXEL [Suspect]
     Indication: BREAST CANCER METASTATIC
     Dosage: 50 MG/M2/DOSE

REACTIONS (3)
  - ALOPECIA [None]
  - VASCULITIS [None]
  - FLUSHING [None]
